FAERS Safety Report 14530578 (Version 1)
Quarter: 2018Q1

REPORT INFORMATION
  Report Type: Spontaneous
  Country: NZ (occurrence: NZ)
  Receive Date: 20180214
  Receipt Date: 20180214
  Transmission Date: 20180509
  Serious: Yes (Death, Other)
  Sender: FDA-Public Use
  Company Number: NZ-ASTRAZENECA-2018SE18985

PATIENT
  Age: 71 Year
  Sex: Female

DRUGS (2)
  1. TICAGRELOR. [Suspect]
     Active Substance: TICAGRELOR
     Route: 048
     Dates: end: 20170917
  2. ASPIRIN. [Concomitant]
     Active Substance: ASPIRIN

REACTIONS (17)
  - Metastases to abdominal cavity [Unknown]
  - Metastases to peritoneum [Unknown]
  - Malignant melanoma [Unknown]
  - Liver function test abnormal [Unknown]
  - Hepatic congestion [Unknown]
  - Oedema [Unknown]
  - Lower respiratory tract infection [Unknown]
  - Death [Fatal]
  - Acute myocardial infarction [Unknown]
  - Dyspnoea [Unknown]
  - Gastric ulcer haemorrhage [Unknown]
  - Hypotension [Unknown]
  - Hepatic failure [Unknown]
  - Rectal haemorrhage [Unknown]
  - Condition aggravated [Unknown]
  - Metastases to lung [Unknown]
  - Fluid overload [Unknown]

NARRATIVE: CASE EVENT DATE: 20170917
